FAERS Safety Report 8176177-1 (Version None)
Quarter: 2012Q1

REPORT INFORMATION
  Report Type: 
  Country: None (occurrence: None)
  Receive Date: 20120301
  Receipt Date: 20120224
  Transmission Date: 20120608
  Serious: Yes (Hospitalization, Other)
  Sender: FDA-Public Use
  Company Number: CH-JNJFOC-20120212181

PATIENT
  Age: 89 Year
  Sex: Female

DRUGS (8)
  1. GALANTAMINE HYDROBROMIDE [Suspect]
     Route: 048
     Dates: start: 20120106
  2. VITAMIN B-12 [Concomitant]
     Route: 030
  3. GALANTAMINE HYDROBROMIDE [Suspect]
     Indication: DEMENTIA
     Route: 048
     Dates: start: 20120204
  4. PAROXETINE HYDROCHLORIDE [Suspect]
     Indication: PRODUCT USED FOR UNKNOWN INDICATION
     Route: 048
     Dates: start: 20110101, end: 20120110
  5. LAXOBERON [Concomitant]
     Route: 065
     Dates: start: 20120106
  6. COZAAR [Concomitant]
     Route: 048
  7. CALCIMAGON D3 [Concomitant]
     Route: 048
     Dates: start: 20111228
  8. ASPIRIN [Concomitant]
     Route: 048

REACTIONS (2)
  - PERSONALITY DISORDER [None]
  - DECREASED APPETITE [None]
